FAERS Safety Report 12978646 (Version 1)
Quarter: 2016Q4

REPORT INFORMATION
  Report Type: Spontaneous
  Country: US (occurrence: US)
  Receive Date: 20161128
  Receipt Date: 20161128
  Transmission Date: 20170207
  Serious: No
  Sender: FDA-Public Use
  Company Number: US-PFIZER INC-2016547761

PATIENT
  Sex: Female

DRUGS (1)
  1. XANAX [Suspect]
     Active Substance: ALPRAZOLAM
     Dosage: UNK
     Dates: end: 20161020

REACTIONS (8)
  - Eating disorder [Unknown]
  - Tremor [Unknown]
  - Panic attack [Unknown]
  - Peripheral swelling [Unknown]
  - Nausea [Unknown]
  - Insomnia [Unknown]
  - Crying [Unknown]
  - Anxiety [Unknown]
